FAERS Safety Report 22595436 (Version 1)
Quarter: 2023Q2

REPORT INFORMATION
  Report Type: Spontaneous
  Country: US (occurrence: None)
  Receive Date: 20230612
  Receipt Date: 20230612
  Transmission Date: 20230722
  Serious: Yes (Other)
  Sender: FDA-Public Use
  Company Number: None

PATIENT
  Age: 60 Year
  Sex: Female

DRUGS (10)
  1. PROLIA [Suspect]
     Active Substance: DENOSUMAB
     Indication: Osteoporosis
     Dosage: OTHER FREQUENCY : ONCE EVERY 6 MONTH;?
     Route: 058
     Dates: start: 20210615, end: 20221212
  2. endocet 10/325 [Concomitant]
  3. NABUMETONE [Concomitant]
  4. buproprion XL [Concomitant]
  5. atomextine [Concomitant]
  6. BUSPIRONE [Concomitant]
  7. ESOMEPRAZOLE [Concomitant]
     Active Substance: ESOMEPRAZOLE
  8. HYDROXYZINE HYDROCHLORIDE [Concomitant]
     Active Substance: HYDROXYZINE HYDROCHLORIDE
  9. LEVOTHYROXINE [Concomitant]
     Active Substance: LEVOTHYROXINE
  10. TIZANIDINE [Concomitant]

REACTIONS (5)
  - Drug hypersensitivity [None]
  - Pain [None]
  - Pyrexia [None]
  - Back pain [None]
  - Influenza like illness [None]

NARRATIVE: CASE EVENT DATE: 20221212
